FAERS Safety Report 14000027 (Version 2)
Quarter: 2017Q4

REPORT INFORMATION
  Report Type: Report from Study
  Country: JP (occurrence: JP)
  Receive Date: 20170922
  Receipt Date: 20171017
  Transmission Date: 20180321
  Serious: Yes (Death, Other)
  Sender: FDA-Public Use
  Company Number: JP-B.I. PHARMACEUTICALS,INC./RIDGEFIELD-2017-NB-005417

PATIENT
  Age: 61 Year
  Sex: Male
  Weight: 76.5 kg

DRUGS (2)
  1. PIRESPA [Concomitant]
     Active Substance: PIRFENIDONE
     Indication: IDIOPATHIC PULMONARY FIBROSIS
     Route: 065
     Dates: end: 20160409
  2. BIBF 1120 [Suspect]
     Active Substance: NINTEDANIB
     Indication: IDIOPATHIC PULMONARY FIBROSIS
     Route: 048
     Dates: start: 20160408, end: 20160409

REACTIONS (2)
  - Idiopathic pulmonary fibrosis [Fatal]
  - Liver injury [Unknown]

NARRATIVE: CASE EVENT DATE: 20160409
